FAERS Safety Report 17333990 (Version 1)
Quarter: 2020Q1

REPORT INFORMATION
  Report Type: Spontaneous
  Country: LT (occurrence: LT)
  Receive Date: 20200128
  Receipt Date: 20200128
  Transmission Date: 20200409
  Serious: Yes (Hospitalization)
  Sender: FDA-Public Use
  Company Number: LT-TEVA-2020-LT-1173796

PATIENT
  Age: 48 Year
  Sex: Female

DRUGS (2)
  1. LISINOPRIL - TABLET [Suspect]
     Active Substance: LISINOPRIL
     Indication: SUICIDAL IDEATION
     Dosage: 8-9 TABLETS (160 MG)
     Route: 048
  2. AMOKSIKLAV [Concomitant]
     Active Substance: AMOXICILLIN\CLAVULANATE POTASSIUM
     Route: 048

REACTIONS (4)
  - Intentional overdose [Recovered/Resolved]
  - Hospitalisation [Recovered/Resolved]
  - Nausea [Recovered/Resolved]
  - Vomiting [Recovered/Resolved]

NARRATIVE: CASE EVENT DATE: 20191211
